FAERS Safety Report 6221382-4 (Version None)
Quarter: 2009Q2

REPORT INFORMATION
  Report Type: 
  Country: None (occurrence: None)
  Receive Date: 20090610
  Receipt Date: 20090511
  Transmission Date: 20091009
  Serious: Yes (Other)
  Sender: FDA-Public Use
  Company Number: US-ROCHE-631812

PATIENT
  Sex: Male
  Weight: 71.2 kg

DRUGS (7)
  1. PEGASYS [Suspect]
     Indication: HEPATITIS C
     Dosage: FORM: PRE-FILLES SYRINGES
     Route: 058
     Dates: start: 20081024
  2. RIBAVIRIN [Suspect]
     Indication: HEPATITIS C
     Dosage: 400 MG IN AM AND 600 MG IN PM
     Route: 048
     Dates: start: 20081024
  3. REMERON [Concomitant]
     Indication: DEPRESSION
     Dosage: FREQUENCY: QHS (EVERY NIGHT)
     Route: 048
     Dates: start: 20081201
  4. TEGRETOL [Concomitant]
     Indication: MOOD SWINGS
     Dosage: DOSE: 400 MG, FREQUENCY: 3 DOSEFORMS AT MORNING AND BEDTIME
     Route: 048
     Dates: start: 20090201
  5. KLONOPIN [Concomitant]
     Indication: ANXIETY
     Dosage: FREQUENCY REPORTED AS 1 QAM, 3QPM DOSE: 1 MG
  6. SEROQUEL [Concomitant]
     Indication: INSOMNIA
     Dosage: FREQUENCY: QHS
  7. XOPENEX [Concomitant]
     Indication: ASTHMA
     Dosage: FORM: PUFFS FREQUENCY: PM
     Route: 055
     Dates: start: 20040101

REACTIONS (1)
  - LIPOMA [None]
